FAERS Safety Report 7266270-X (Version None)
Quarter: 2011Q1

REPORT INFORMATION
  Report Type: 
  Country: None (occurrence: None)
  Receive Date: 20110131
  Receipt Date: 20110119
  Transmission Date: 20110831
  Serious: Yes (Other)
  Sender: FDA-Public Use
  Company Number: CH-BAYER-2011-005679

PATIENT
  Age: 61 Year
  Sex: Female

DRUGS (6)
  1. BONIVA [Suspect]
     Dosage: 3 MG, Q3MON
     Route: 042
     Dates: start: 20100302, end: 20100902
  2. SORTIS [Suspect]
     Dosage: 40 MG, QD
     Route: 048
  3. PREDNISONE [Concomitant]
  4. ASPIRIN [Suspect]
     Route: 048
  5. RENITEN [Suspect]
     Dosage: 10 MG, QD
     Route: 048
  6. PLAQUENIL [Suspect]
     Dosage: 200 MG, QD
     Route: 048
     Dates: start: 19990101

REACTIONS (3)
  - HEPATITIS CHOLESTATIC [None]
  - FATIGUE [None]
  - DECREASED APPETITE [None]
